FAERS Safety Report 7760780-4 (Version None)
Quarter: 2011Q3

REPORT INFORMATION
  Report Type: 
  Country: None (occurrence: None)
  Receive Date: 20110919
  Receipt Date: 20110914
  Transmission Date: 20111222
  Serious: Yes (Life-Threatening, Other)
  Sender: FDA-Public Use
  Company Number: US-ASTRAZENECA-2010SE26184

PATIENT
  Age: 51 Year
  Sex: Male
  Weight: 78.9 kg

DRUGS (18)
  1. PREVACID [Concomitant]
  2. PATANOL [Concomitant]
     Route: 047
  3. ABILIFY [Concomitant]
  4. LORATADINE [Concomitant]
  5. SIMVASTATIN [Concomitant]
  6. LAMICTAL [Concomitant]
  7. LOVAZA [Concomitant]
  8. PRILOSEC [Suspect]
     Route: 048
  9. AVAPRO [Concomitant]
  10. NAFTIFINE [Concomitant]
  11. PROAIR HFA [Concomitant]
     Dosage: TWO PUFFS
  12. SUCRALFATE [Concomitant]
  13. PRILOSEC OTC [Suspect]
     Route: 048
  14. ZANTAC [Concomitant]
  15. KLONOPIN [Concomitant]
  16. DEPAKOTE [Concomitant]
  17. NEXIUM [Suspect]
     Route: 048
  18. EFFEXOR [Concomitant]

REACTIONS (19)
  - BLOOD PRESSURE INADEQUATELY CONTROLLED [None]
  - HYPERCHLORHYDRIA [None]
  - GASTROOESOPHAGEAL REFLUX DISEASE [None]
  - DIZZINESS POSTURAL [None]
  - BRADYPHRENIA [None]
  - BIPOLAR I DISORDER [None]
  - TACHYPHRENIA [None]
  - HEADACHE [None]
  - RESPIRATORY FAILURE [None]
  - DIZZINESS [None]
  - GENERAL PHYSICAL HEALTH DETERIORATION [None]
  - INCORRECT DOSE ADMINISTERED [None]
  - DISCOMFORT [None]
  - SOMNOLENCE [None]
  - DRUG INEFFECTIVE [None]
  - DRUG DOSE OMISSION [None]
  - PSYCHOMOTOR HYPERACTIVITY [None]
  - IRRITABLE BOWEL SYNDROME [None]
  - MANIA [None]
